FAERS Safety Report 7809922 (Version 2)
Quarter: 2013Q4

REPORT INFORMATION
  Report Type: Spontaneous
  Country: BR (occurrence: BR)
  Receive Date: 20110211
  Receipt Date: 20131211
  Transmission Date: 20140711
  Serious: Yes (Hospitalization, Other)
  Sender: FDA-Public Use
  Company Number: BR-PFIZER INC-2011027721

PATIENT
  Age: 60 Year
  Sex: Female
  Weight: 86 kg

DRUGS (13)
  1. ALDACTONE [Suspect]
     Indication: HYPERTENSION
     Dosage: 25 MG, 1X/DAY
     Route: 048
     Dates: start: 2011
  2. ALDACTONE [Suspect]
     Dosage: 25 MG, ALTERNATE DAY
     Route: 048
  3. ALDACTONE [Suspect]
     Dosage: 25 MG, 1X/DAY
     Route: 048
  4. ALDACTONE [Suspect]
     Dosage: 12.5 MG, ALTERNATE DAY (HALF OF TABLET EVERY 2 DAYS)
  5. PERICOR [Concomitant]
     Indication: HYPERTENSION
     Dosage: 4 MG, UNK
     Dates: start: 20101213
  6. CLORANA [Concomitant]
     Indication: HYPERTENSION
     Dosage: 25 MG, UNK
     Dates: start: 20101213
  7. CLAUDIC [Concomitant]
     Dosage: 50 MG, UNK
     Dates: start: 20101213
  8. LASIX [Concomitant]
     Indication: DIURETIC THERAPY
     Dosage: 40 MG, UNK
  9. FRONTAL [Concomitant]
     Indication: DEPRESSION
     Dosage: 0.5 MG, UNK
     Dates: start: 2000
  10. ATENOLOL [Concomitant]
     Indication: HYPERTENSION
     Dosage: 100 MG, UNK
  11. ADALAT RETARD [Concomitant]
     Indication: HYPERTENSION
     Dosage: UNK
  12. LOSARTAN [Concomitant]
     Indication: HYPERTENSION
     Dosage: UNK
  13. GLIFAGE [Concomitant]
     Indication: DIABETES MELLITUS
     Dosage: UNK

REACTIONS (8)
  - Blood sodium decreased [Unknown]
  - Vomiting [Recovering/Resolving]
  - Diarrhoea [Recovering/Resolving]
  - Vertigo [Not Recovered/Not Resolved]
  - Drug ineffective [Not Recovered/Not Resolved]
  - Feeling abnormal [Unknown]
  - Confusional state [Recovering/Resolving]
  - Memory impairment [Unknown]
